FAERS Safety Report 6931518-5 (Version None)
Quarter: 2010Q3

REPORT INFORMATION
  Report Type: 
  Country: None (occurrence: None)
  Receive Date: 20100812
  Receipt Date: 20100222
  Transmission Date: 20110219
  Serious: Yes (Other)
  Sender: FDA-Public Use
  Company Number: 2010SP011316

PATIENT
  Age: 51 Year
  Sex: Female

DRUGS (11)
  1. MIRTAZAPINE [Suspect]
     Indication: ANXIETY
     Dosage: 7.5 MG;HS;PO, 11/25 MG;HS;PO
     Route: 048
  2. MIRTAZAPINE [Suspect]
     Indication: DEPRESSION
     Dosage: 7.5 MG;HS;PO, 11/25 MG;HS;PO
     Route: 048
  3. MIRTAZAPINE [Suspect]
     Indication: INSOMNIA
     Dosage: 7.5 MG;HS;PO, 11/25 MG;HS;PO
     Route: 048
  4. NORTRIPTYLINE HCL [Concomitant]
  5. CLONAZEPAM [Concomitant]
  6. OXYCODONE LA [Concomitant]
  7. GABAPENTIN [Concomitant]
  8. PSEUDOEPHEDRINE [Concomitant]
  9. ORPHENADRINE CITRATE [Concomitant]
  10. PROPRANOLOL [Concomitant]
  11. OMEPROZOLE [Concomitant]

REACTIONS (7)
  - DELUSION [None]
  - DRUG SCREEN POSITIVE [None]
  - HALLUCINATION, AUDITORY [None]
  - HALLUCINATION, VISUAL [None]
  - PARANOIA [None]
  - PSYCHOTIC DISORDER [None]
  - UNDERDOSE [None]
